FAERS Safety Report 5238182-4 (Version None)
Quarter: 2007Q1

REPORT INFORMATION
  Report Type: 
  Country: None (occurrence: None)
  Receive Date: 20070215
  Receipt Date: 20070206
  Transmission Date: 20070707
  Serious: Yes (Other)
  Sender: FDA-Public Use
  Company Number: PT-JNJFOC-20070101194

PATIENT
  Age: 42 Year
  Sex: Female

DRUGS (1)
  1. TOPAMAX [Suspect]
     Indication: MIGRAINE PROPHYLAXIS
     Route: 048
     Dates: start: 20061001, end: 20061201

REACTIONS (2)
  - CORNEAL OEDEMA [None]
  - FLAT ANTERIOR CHAMBER OF EYE [None]
